FAERS Safety Report 9790093 (Version 1)
Quarter: 2013Q4

REPORT INFORMATION
  Report Type: Spontaneous
  Country: US (occurrence: None)
  Receive Date: 20131230
  Receipt Date: 20131230
  Transmission Date: 20140711
  Serious: Yes (Other)
  Sender: FDA-Public Use
  Company Number: None

PATIENT
  Age: 57 Year
  Sex: Male

DRUGS (2)
  1. BUPROPION HCL [Suspect]
     Dosage: 1 TABLET BID ORAL
     Route: 048
     Dates: start: 20121225, end: 20131227
  2. PAROXETINE [Concomitant]

REACTIONS (3)
  - Abdominal discomfort [None]
  - Product quality issue [None]
  - Product odour abnormal [None]
